FAERS Safety Report 17975603 (Version 1)
Quarter: 2020Q3

REPORT INFORMATION
  Report Type: Report from Study
  Country: US (occurrence: US)
  Receive Date: 20200702
  Receipt Date: 20200702
  Transmission Date: 20201103
  Serious: Yes (Hospitalization)
  Sender: FDA-Public Use
  Company Number: US-ACTELION-A-US2019-197969

PATIENT
  Sex: Female
  Weight: 74.83 kg

DRUGS (2)
  1. SILDENAFIL CITRATE. [Concomitant]
     Active Substance: SILDENAFIL CITRATE
  2. OPSUMIT [Suspect]
     Active Substance: MACITENTAN
     Indication: PULMONARY HYPERTENSION
     Dosage: 10 MG, QD
     Route: 048

REACTIONS (11)
  - Dyspnoea [Unknown]
  - Immune system disorder [Recovered/Resolved]
  - Heart rate increased [Unknown]
  - Pyrexia [Unknown]
  - Nasopharyngitis [Recovered/Resolved]
  - Joint lock [Unknown]
  - Pain in extremity [Unknown]
  - Pneumonia [Unknown]
  - Blood potassium increased [Unknown]
  - Dehydration [Unknown]
  - Illness [Recovered/Resolved]
